FAERS Safety Report 6318349-4 (Version None)
Quarter: 2009Q3

REPORT INFORMATION
  Report Type: 
  Country: None (occurrence: None)
  Receive Date: 20090821
  Receipt Date: 20090814
  Transmission Date: 20100115
  Serious: Yes (Hospitalization)
  Sender: FDA-Public Use
  Company Number: JP-MERCK-0904USA00287

PATIENT
  Age: 76 Year
  Sex: Female

DRUGS (8)
  1. ZETIA [Suspect]
     Indication: HYPERCHOLESTEROLAEMIA
     Route: 048
     Dates: start: 20080425, end: 20081020
  2. FUROSEMIDE [Concomitant]
     Route: 065
     Dates: start: 20080425
  3. LIMAPROST ALFADEX [Concomitant]
     Route: 065
     Dates: start: 20080714
  4. VOGLIBOSE [Concomitant]
     Route: 065
     Dates: start: 20080801
  5. VOGLIBOSE [Concomitant]
     Route: 065
  6. FAMOTIDINE [Concomitant]
     Route: 048
  7. IMIDAFENACIN [Concomitant]
     Route: 065
  8. EPERISONE HYDROCHLORIDE [Concomitant]
     Route: 065

REACTIONS (2)
  - BLOOD GLUCOSE INCREASED [None]
  - GLYCOSYLATED HAEMOGLOBIN INCREASED [None]
